FAERS Safety Report 8494422-X (Version None)
Quarter: 2012Q3

REPORT INFORMATION
  Report Type: 
  Country: None (occurrence: None)
  Receive Date: 20120709
  Receipt Date: 20120629
  Transmission Date: 20120928
  Serious: Yes (Hospitalization)
  Sender: FDA-Public Use
  Company Number: US-US-EMD SERONO, INC.-7013984

PATIENT
  Sex: Female
  Weight: 79 kg

DRUGS (3)
  1. REBIF [Suspect]
     Indication: MULTIPLE SCLEROSIS
     Route: 058
     Dates: start: 20091001, end: 20100714
  2. HYDROCHLOROTHIAZIDE [Suspect]
     Indication: HYPERTENSION
     Dates: end: 20100701
  3. LISINOPRIL [Suspect]
     Indication: HYPERTENSION
     Dates: end: 20100701

REACTIONS (3)
  - HYPONATRAEMIA [None]
  - INFUSION SITE EXTRAVASATION [None]
  - MULTIPLE SCLEROSIS RELAPSE [None]
